FAERS Safety Report 9296661 (Version 1)
Quarter: 2013Q2

REPORT INFORMATION
  Report Type: Report from Study
  Country: CA (occurrence: CA)
  Receive Date: 20130517
  Receipt Date: 20130517
  Transmission Date: 20140414
  Serious: Yes (Hospitalization, Other)
  Sender: FDA-Public Use
  Company Number: PHHY2013CA046654

PATIENT
  Sex: Female

DRUGS (2)
  1. FEMARA [Suspect]
     Indication: BREAST CANCER METASTATIC
     Route: 048
  2. RADIATION [Concomitant]

REACTIONS (3)
  - Brain neoplasm [Unknown]
  - Breast cancer [Unknown]
  - Malignant neoplasm progression [Unknown]
